FAERS Safety Report 8000047-2 (Version None)
Quarter: 2011Q4

REPORT INFORMATION
  Report Type: 
  Country: None (occurrence: None)
  Receive Date: 20111222
  Receipt Date: 20090727
  Transmission Date: 20120403
  Serious: No
  Sender: FDA-Public Use
  Company Number: 2009BI023407

PATIENT
  Age: 61 Year
  Sex: Male

DRUGS (2)
  1. TYSABRI [Suspect]
     Route: 042
     Dates: start: 20080908, end: 20110719
  2. TYSABRI [Suspect]
     Indication: MULTIPLE SCLEROSIS
     Route: 042
     Dates: start: 20080908, end: 20100816

REACTIONS (4)
  - FATIGUE [None]
  - MOBILITY DECREASED [None]
  - MUSCULAR WEAKNESS [None]
  - GAIT DISTURBANCE [None]
